FAERS Safety Report 26129584 (Version 1)
Quarter: 2025Q4

REPORT INFORMATION
  Report Type: Spontaneous
  Country: US (occurrence: US)
  Receive Date: 20251208
  Receipt Date: 20251208
  Transmission Date: 20260118
  Serious: Yes (Other)
  Sender: Navitas Life Sciences Inc
  Company Number: US-ADVAGEN PHARMA LIMITED-ADGN-RB-2025-00129

PATIENT

DRUGS (1)
  1. CLONAZEPAM [Suspect]
     Active Substance: CLONAZEPAM
     Indication: Anxiety
     Dosage: UNK (TABLET)
     Route: 065

REACTIONS (8)
  - Cardiac fibrillation [Unknown]
  - Cardiac flutter [Unknown]
  - Withdrawal syndrome [Unknown]
  - Chest pain [Unknown]
  - Therapeutic response changed [Unknown]
  - Incorrect dose administered [Unknown]
  - Product quality issue [Unknown]
  - Product substitution issue [Unknown]
